FAERS Safety Report 26102828 (Version 2)
Quarter: 2025Q4

REPORT INFORMATION
  Report Type: Spontaneous
  Country: SG (occurrence: SG)
  Receive Date: 20251128
  Receipt Date: 20251211
  Transmission Date: 20260117
  Serious: Yes (Other)
  Sender: ROCHE
  Company Number: SG-ROCHE-10000443843

PATIENT
  Age: 52 Year
  Sex: Female
  Weight: 54 kg

DRUGS (1)
  1. PHESGO [Suspect]
     Active Substance: HYALURONIDASE-ZZXF\PERTUZUMAB\TRASTUZUMAB
     Indication: Breast cancer

REACTIONS (4)
  - Lymphadenectomy [Unknown]
  - Mastectomy [Unknown]
  - Flushing [Unknown]
  - Feeling hot [Unknown]
